FAERS Safety Report 9718091 (Version 1)
Quarter: 2013Q4

REPORT INFORMATION
  Report Type: Spontaneous
  Country: US (occurrence: US)
  Receive Date: 20131125
  Receipt Date: 20131125
  Transmission Date: 20140711
  Serious: No
  Sender: FDA-Public Use
  Company Number: US-VIVUS-2013V1000515

PATIENT
  Age: 42 Year
  Sex: Female
  Weight: 78.09 kg

DRUGS (2)
  1. QSYMIA 3.75MG/23MG [Suspect]
     Indication: WEIGHT DECREASED
     Route: 048
     Dates: start: 20130703, end: 20130705
  2. SPIRONOLACTONE [Concomitant]
     Indication: PRODUCT USED FOR UNKNOWN INDICATION
     Route: 048

REACTIONS (4)
  - Paraesthesia [Unknown]
  - Disturbance in attention [Unknown]
  - Feeling abnormal [Unknown]
  - Aphasia [Unknown]
